FAERS Safety Report 4572962-3 (Version None)
Quarter: 2005Q1

REPORT INFORMATION
  Report Type: 
  Country: None (occurrence: None)
  Receive Date: 20050203
  Receipt Date: 20050124
  Transmission Date: 20050727
  Serious: Yes (Other)
  Sender: FDA-Public Use
  Company Number: 2005US000115

PATIENT
  Sex: Female

DRUGS (1)
  1. AMBISOME [Suspect]
     Dosage: 3.00 MG/KG UID /QD INTRAVENOUS
     Route: 042

REACTIONS (1)
  - DEAFNESS [None]
